FAERS Safety Report 8534482-0 (Version None)
Quarter: 2012Q2

REPORT INFORMATION
  Report Type: 
  Country: None (occurrence: None)
  Receive Date: 20120412
  Receipt Date: 20090706
  Transmission Date: 20120825
  Serious: Yes (Other)
  Sender: FDA-Public Use
  Company Number: PHEH2009US04284

PATIENT
  Age: 65 Year
  Sex: Male

DRUGS (2)
  1. COGENTIN [Concomitant]
  2. CLOZARIL [Suspect]
     Indication: SCHIZOPHRENIA
     Dosage: 200 MG, BID, ORAL
     Route: 048

REACTIONS (1)
  - PLATELET COUNT DECREASED [None]
